FAERS Safety Report 6539792-4 (Version None)
Quarter: 2010Q1

REPORT INFORMATION
  Report Type: 
  Country: None (occurrence: None)
  Receive Date: 20100115
  Receipt Date: 20100106
  Transmission Date: 20100710
  Serious: Yes (Other)
  Sender: FDA-Public Use
  Company Number: ZA-PFIZER INC-2010001873

PATIENT
  Sex: Female

DRUGS (1)
  1. PHENYTOIN SODIUM CAP [Suspect]
     Indication: EPILEPSY
     Dosage: 100 MG, 3X/DAY
     Route: 048

REACTIONS (2)
  - ANTICONVULSANT DRUG LEVEL DECREASED [None]
  - CONVULSION [None]
